FAERS Safety Report 4486363-X (Version None)
Quarter: 2004Q4

REPORT INFORMATION
  Report Type: 
  Country: None (occurrence: None)
  Receive Date: 20041021
  Receipt Date: 20041018
  Transmission Date: 20050328
  Serious: Yes (Other)
  Sender: FDA-Public Use
  Company Number: FRWYE122619OCT04

PATIENT
  Age: 36 Year
  Sex: Female

DRUGS (1)
  1. EFFEXOR [Suspect]
     Indication: DEPRESSION
     Dosage: 50 MG 3X PER 1 DAY; ORAL
     Route: 048
     Dates: start: 20030101

REACTIONS (1)
  - PROLACTIN-PRODUCING PITUITARY TUMOUR [None]
